FAERS Safety Report 6971553-4 (Version None)
Quarter: 2010Q3

REPORT INFORMATION
  Report Type: 
  Country: None (occurrence: None)
  Receive Date: 20100908
  Receipt Date: 20100830
  Transmission Date: 20110219
  Serious: Yes (Death, Hospitalization, Other)
  Sender: FDA-Public Use
  Company Number: US-MPIJNJ-2010-04363

PATIENT
  Sex: Male
  Weight: 87.5 kg

DRUGS (2)
  1. VELCADE [Suspect]
     Indication: ACUTE MYELOID LEUKAEMIA
     Dosage: 1 MG/M2, CYCLIC
     Route: 042
     Dates: start: 20100629, end: 20100723
  2. VORINOSTAT [Suspect]
     Indication: ACUTE MYELOID LEUKAEMIA
     Dosage: 300 MG, CYCLIC
     Route: 048
     Dates: start: 20100629, end: 20100726

REACTIONS (2)
  - DYSPNOEA [None]
  - HYPOXIA [None]
